FAERS Safety Report 6120360-3 (Version None)
Quarter: 2009Q1

REPORT INFORMATION
  Report Type: 
  Country: None (occurrence: None)
  Receive Date: 20090312
  Receipt Date: 20090312
  Transmission Date: 20090719
  Serious: Yes (Other)
  Sender: FDA-Public Use
  Company Number: None

PATIENT
  Weight: 72.5755 kg

DRUGS (1)
  1. TRILYTE [Suspect]
     Indication: COLONOSCOPY
     Dosage: 8 OZ (1ST 3 LITERS) EVERY 15 MIN 8 OZ (LAST 1 LITER) EVERY 15 MIN
     Dates: start: 20090112, end: 20090113

REACTIONS (7)
  - ABDOMINAL PAIN UPPER [None]
  - BLOOD PRESSURE INCREASED [None]
  - BURNING SENSATION [None]
  - DRUG TOXICITY [None]
  - HAEMORRHOIDAL HAEMORRHAGE [None]
  - MUSCLE SPASMS [None]
  - MUSCLE STRAIN [None]
